FAERS Safety Report 8370958-7 (Version None)
Quarter: 2012Q2

REPORT INFORMATION
  Report Type: 
  Country: None (occurrence: None)
  Receive Date: 20120517
  Receipt Date: 20120126
  Transmission Date: 20120825
  Serious: No
  Sender: FDA-Public Use
  Company Number: USA/USA/12/0022823

PATIENT
  Sex: Female

DRUGS (2)
  1. RANITIDINE [Suspect]
     Indication: DYSPEPSIA
     Dosage: 75 MG, AS REQUIRED, ORAL; SINCE SEVERAL YEARS
     Route: 048
  2. INDERIDE (INDERIDE) [Concomitant]

REACTIONS (6)
  - NAUSEA [None]
  - VOMITING [None]
  - CHEST PAIN [None]
  - DIARRHOEA [None]
  - DYSPNOEA [None]
  - ABDOMINAL DISTENSION [None]
